FAERS Safety Report 5928818-4 (Version None)
Quarter: 2008Q4

REPORT INFORMATION
  Report Type: 
  Country: None (occurrence: None)
  Receive Date: 20081020
  Receipt Date: 20081001
  Transmission Date: 20090506
  Serious: Yes (Other)
  Sender: FDA-Public Use
  Company Number: 8032270

PATIENT
  Age: 60 Year
  Sex: Male

DRUGS (8)
  1. KEPPRA [Suspect]
     Indication: PARTIAL SEIZURES
     Dosage: 1500 MG /D PO
     Route: 048
     Dates: start: 20080328, end: 20080403
  2. TEGRETOL [Suspect]
     Indication: PARTIAL SEIZURES
     Dosage: 500 MG /D PO
     Route: 048
     Dates: start: 20080301, end: 20080401
  3. PLAVIX [Suspect]
     Indication: ISCHAEMIC STROKE
     Dosage: 75 MG 1/D PO
     Route: 048
     Dates: start: 20080329, end: 20080403
  4. TRIATEC /00885601/ [Concomitant]
  5. ESAPENT [Concomitant]
  6. BENTELAN [Concomitant]
  7. XYZAL [Concomitant]
  8. TACHIPIRINA [Concomitant]

REACTIONS (2)
  - AGRANULOCYTOSIS [None]
  - NEUTROPENIA [None]
